FAERS Safety Report 13366662 (Version 1)
Quarter: 2017Q1

REPORT INFORMATION
  Report Type: Other
  Country: GB (occurrence: US)
  Receive Date: 20170323
  Receipt Date: 20170323
  Transmission Date: 20170429
  Serious: Yes (Death, Life-Threatening)
  Sender: FDA-Public Use
  Company Number: US-INTERNATIONAL MEDICATION SYSTEMS, LIMITED-1064600

PATIENT
  Age: 49 Year
  Sex: Female

DRUGS (4)
  1. NOREPINEPHRINE [Suspect]
     Active Substance: NOREPINEPHRINE\NOREPINEPHRINE BITARTRATE
  2. EPINEPHRINE. [Suspect]
     Active Substance: EPINEPHRINE
     Indication: HYPOTENSION
  3. DOPAMINE [Suspect]
     Active Substance: DOPAMINE\DOPAMINE HYDROCHLORIDE
  4. VASOPRESSIN. [Suspect]
     Active Substance: VASOPRESSIN

REACTIONS (2)
  - Drug ineffective [Fatal]
  - Death [None]
